FAERS Safety Report 19294812 (Version 1)
Quarter: 2021Q2

REPORT INFORMATION
  Report Type: Spontaneous
  Country: US (occurrence: US)
  Receive Date: 20210524
  Receipt Date: 20210524
  Transmission Date: 20210717
  Serious: Yes (Other)
  Sender: FDA-Public Use
  Company Number: US-CADILA HEALTHCARE LIMITED-US-ZYDUS-065865

PATIENT

DRUGS (3)
  1. HALOPERIDOL. [Suspect]
     Active Substance: HALOPERIDOL
     Indication: DELIRIUM
     Route: 065
  2. LORAZEPAM. [Concomitant]
     Active Substance: LORAZEPAM
     Indication: DELIRIUM
  3. GABAPENTIN. [Suspect]
     Active Substance: GABAPENTIN
     Indication: DELIRIUM
     Dosage: UNK
     Route: 065

REACTIONS (3)
  - Delirium [Unknown]
  - Withdrawal syndrome [Unknown]
  - Condition aggravated [Unknown]
